FAERS Safety Report 4711499-5 (Version None)
Quarter: 2005Q3

REPORT INFORMATION
  Report Type: 
  Country: None (occurrence: None)
  Receive Date: 20050711
  Receipt Date: 20050624
  Transmission Date: 20060218
  Serious: Yes (Hospitalization, Other)
  Sender: FDA-Public Use
  Company Number: 2004-0007680

PATIENT
  Age: 12 Year
  Sex: Female
  Weight: 41.8 kg

DRUGS (4)
  1. VIREAD [Suspect]
     Indication: HIV INFECTION
     Dosage: 300 MG, 1 IN 1 D, ORAL
     Route: 048
     Dates: start: 20030715, end: 20040702
  2. KALETRA [Concomitant]
  3. VIDEX [Concomitant]
  4. RITALIN [Concomitant]

REACTIONS (19)
  - ASTHENIA [None]
  - BLOOD AMYLASE INCREASED [None]
  - BLOOD BICARBONATE INCREASED [None]
  - BLOOD CHLORIDE DECREASED [None]
  - BLOOD GLUCOSE INCREASED [None]
  - BLOOD PH DECREASED [None]
  - BLOOD PHOSPHORUS INCREASED [None]
  - BLOOD SODIUM DECREASED [None]
  - BLOOD UREA DECREASED [None]
  - BLOOD URIC ACID INCREASED [None]
  - CREATINE URINE INCREASED [None]
  - GLUCOSE URINE PRESENT [None]
  - GLYCOSURIA [None]
  - LIPASE INCREASED [None]
  - NEPHROGENIC DIABETES INSIPIDUS [None]
  - PROTEINURIA [None]
  - URINE CALCIUM DECREASED [None]
  - URINE KETONE BODY PRESENT [None]
  - WEIGHT DECREASED [None]
